FAERS Safety Report 6757623-4 (Version None)
Quarter: 2010Q2

REPORT INFORMATION
  Report Type: 
  Country: None (occurrence: None)
  Receive Date: 20100607
  Receipt Date: 20090217
  Transmission Date: 20101027
  Serious: Yes (Hospitalization)
  Sender: FDA-Public Use
  Company Number: US-ASTRAZENECA-2007UW14348

PATIENT
  Age: 14975 Day
  Sex: Female

DRUGS (24)
  1. SEROQUEL [Suspect]
     Indication: SLEEP DISORDER
     Dosage: 100 MG-300 MG
     Route: 048
     Dates: start: 20020805
  2. SEROQUEL [Suspect]
     Dosage: 200 - 400 MG
     Route: 048
     Dates: start: 20030701, end: 20060401
  3. SEROQUEL [Suspect]
     Dosage: 100-400MG
     Route: 048
     Dates: start: 20050129
  4. EFFEXOR XR [Concomitant]
     Dosage: 75 MG-150 MG
     Route: 065
     Dates: start: 20020909
  5. CLONAZEPAM [Concomitant]
     Route: 065
     Dates: start: 20020812
  6. DIOVAN HCT [Concomitant]
     Dosage: 160/25 MG, HALF DAILY
     Route: 065
  7. DIOVAN HCT [Concomitant]
     Dosage: 20/12.5
     Dates: start: 20030730
  8. AVANDAMET [Concomitant]
     Dosage: 4/1000 MG
     Route: 065
  9. TRICOR [Concomitant]
     Route: 065
     Dates: start: 20050117
  10. GLUCOPHAGE [Concomitant]
     Dosage: 500-2000 MG
     Route: 065
  11. PROPOXYPHENE HCL AND ACETAMINOPHEN [Concomitant]
     Dosage: 100/650 MG
     Route: 065
  12. GLUCOTROL [Concomitant]
     Dosage: 5-20 MG
     Route: 065
  13. NAPROXEN [Concomitant]
     Dosage: 500-100 MG
     Route: 065
  14. VICODIN [Concomitant]
     Dosage: 500/5 MG - 1000/10MG
     Route: 065
  15. HCTZ [Concomitant]
     Route: 048
  16. NEXIUM [Concomitant]
     Route: 065
  17. ACTOS [Concomitant]
     Route: 065
  18. GLYBURIDE [Concomitant]
     Dosage: 5-20MG
     Route: 065
  19. REGLAN [Concomitant]
     Dosage: 10-40 MG
     Route: 065
  20. PREVACID [Concomitant]
     Route: 065
  21. VIOXX [Concomitant]
     Dates: start: 20031017
  22. PAXIL [Concomitant]
     Dates: start: 20020419
  23. MEPERIDINE/PROMETHAZINE [Concomitant]
     Dates: start: 20020209
  24. INDERAL LA [Concomitant]
     Dates: start: 20020418

REACTIONS (17)
  - ABDOMINAL PAIN LOWER [None]
  - BACK PAIN [None]
  - CHANGE OF BOWEL HABIT [None]
  - COLONIC POLYP [None]
  - CONSTIPATION [None]
  - DIVERTICULUM [None]
  - DIVERTICULUM INTESTINAL [None]
  - GASTRITIS [None]
  - HAEMORRHOIDS [None]
  - IMPAIRED GASTRIC EMPTYING [None]
  - IRRITABLE BOWEL SYNDROME [None]
  - PAIN IN EXTREMITY [None]
  - REFLUX GASTRITIS [None]
  - RENAL COLIC [None]
  - TYPE 2 DIABETES MELLITUS [None]
  - UPPER RESPIRATORY TRACT INFECTION [None]
  - VISION BLURRED [None]
